FAERS Safety Report 22256428 (Version 2)
Quarter: 2023Q2

REPORT INFORMATION
  Report Type: Spontaneous
  Country: CZ (occurrence: CZ)
  Receive Date: 20230426
  Receipt Date: 20230607
  Transmission Date: 20230721
  Serious: Yes (Hospitalization)
  Sender: FDA-Public Use
  Company Number: CZ-MYLANLABS-2023M1042581

PATIENT
  Age: 76 Year
  Sex: Male

DRUGS (3)
  1. INSULIN GLARGINE [Suspect]
     Active Substance: INSULIN GLARGINE
     Indication: Type 2 diabetes mellitus
     Dosage: 38 DF, QD(4 TIMES A DAY, 38 UNITS IN THE EVENING)
     Route: 058
  2. INSULIN LISPRO [Suspect]
     Active Substance: INSULIN LISPRO
     Indication: Type 2 diabetes mellitus
     Dosage: 38 INTERNATIONAL UNIT, QD (14-12-12 UNITS)
     Route: 065
  3. INSULIN LISPRO [Suspect]
     Active Substance: INSULIN LISPRO
     Dosage: UNK, SHORT-TERM PRANDIAL BOLUS INSULIN LISPRO 14
     Route: 058

REACTIONS (4)
  - Hypoglycaemia [Unknown]
  - Hyperglycaemia [Unknown]
  - Intentional product misuse [Unknown]
  - Product dose omission issue [Recovered/Resolved]
